FAERS Safety Report 6220745-0 (Version None)
Quarter: 2009Q2

REPORT INFORMATION
  Report Type: 
  Country: None (occurrence: None)
  Receive Date: 20090610
  Receipt Date: 20090602
  Transmission Date: 20091009
  Serious: Yes (Death, Hospitalization, Other)
  Sender: FDA-Public Use
  Company Number: PHHY2008JP24946

PATIENT
  Sex: Female

DRUGS (6)
  1. NEORAL [Suspect]
     Indication: MYASTHENIA GRAVIS
     Dosage: 100 MG/DAY
     Route: 048
     Dates: start: 20080117, end: 20080421
  2. WARFARIN POTASSIUM [Suspect]
     Indication: PULMONARY EMBOLISM
     Dosage: 1.5 MG/DAY
     Route: 048
     Dates: start: 20080117, end: 20080408
  3. DRUG THERAPY NOS [Concomitant]
     Indication: MYASTHENIA GRAVIS
     Dosage: UNK
     Dates: start: 20080117, end: 20080421
  4. ADRENAL HORMONE PREPARATION [Concomitant]
     Indication: MYASTHENIA GRAVIS
  5. STEROIDS NOS [Concomitant]
  6. TPN [Concomitant]

REACTIONS (10)
  - CEREBRAL INFARCTION [None]
  - CYTOMEGALOVIRUS ENTEROCOLITIS [None]
  - DISSEMINATED INTRAVASCULAR COAGULATION [None]
  - DYSPHAGIA [None]
  - KLEBSIELLA INFECTION [None]
  - LARGE INTESTINAL ULCER HAEMORRHAGE [None]
  - MELAENA [None]
  - PNEUMONIA ASPIRATION [None]
  - SHOCK [None]
  - STAPHYLOCOCCAL INFECTION [None]
